FAERS Safety Report 11909419 (Version 2)
Quarter: 2016Q3

REPORT INFORMATION
  Report Type: Spontaneous
  Country: US (occurrence: US)
  Receive Date: 20160112
  Receipt Date: 20160825
  Transmission Date: 20161109
  Serious: Yes (Other)
  Sender: FDA-Public Use
  Company Number: US-TEVA-609392USA

PATIENT
  Age: 46 Year
  Sex: Female

DRUGS (16)
  1. SINGULAIR [Concomitant]
     Active Substance: MONTELUKAST SODIUM
  2. SAVELLA [Concomitant]
     Active Substance: MILNACIPRAN HYDROCHLORIDE
  3. FLEXERIL [Concomitant]
     Active Substance: CYCLOBENZAPRINE HYDROCHLORIDE
  4. CLOMIPRAMINE [Concomitant]
     Active Substance: CLOMIPRAMINE
  5. PROPRANOLOL [Concomitant]
     Active Substance: PROPRANOLOL\PROPRANOLOL HYDROCHLORIDE
  6. PREVACID [Concomitant]
     Active Substance: LANSOPRAZOLE
  7. ZECUITY [Suspect]
     Active Substance: SUMATRIPTAN SUCCINATE
     Indication: HEADACHE
     Route: 062
     Dates: start: 20151110
  8. JARDIANCE [Concomitant]
     Active Substance: EMPAGLIFLOZIN
  9. MAG SALTS [Concomitant]
  10. TRAMADOL. [Concomitant]
     Active Substance: TRAMADOL
  11. GRALISE [Concomitant]
     Active Substance: GABAPENTIN
  12. IMURAN [Concomitant]
     Active Substance: AZATHIOPRINE
  13. ADVIL [Concomitant]
     Active Substance: IBUPROFEN
  14. MELATONIN [Concomitant]
     Active Substance: MELATONIN
  15. PRIMPRO [Concomitant]
  16. PRAVASTATIN. [Concomitant]
     Active Substance: PRAVASTATIN

REACTIONS (17)
  - Application site vesicles [Recovered/Resolved]
  - Application site irritation [Recovered/Resolved]
  - Wrong technique in product usage process [Unknown]
  - Application site erosion [Recovered/Resolved]
  - Application site exfoliation [Recovered/Resolved]
  - Application site discomfort [Recovered/Resolved]
  - Application site erythema [Recovered/Resolved]
  - Application site paraesthesia [Recovered/Resolved]
  - Application site pruritus [Recovered/Resolved]
  - Application site warmth [Recovered/Resolved]
  - Application site scar [Recovered/Resolved]
  - Application site pain [Recovered/Resolved]
  - Application site discolouration [Recovered/Resolved]
  - Product leakage [Unknown]
  - Application site scab [Recovered/Resolved]
  - Application site burn [Recovered/Resolved]
  - Product adhesion issue [Unknown]

NARRATIVE: CASE EVENT DATE: 20151110
